FAERS Safety Report 24062297 (Version 1)
Quarter: 2024Q3

REPORT INFORMATION
  Report Type: Spontaneous
  Country: US (occurrence: US)
  Receive Date: 20240708
  Receipt Date: 20240708
  Transmission Date: 20241017
  Serious: Yes (Other)
  Sender: VISTAPHARM
  Company Number: US-VISTAPHARM-2024-US-036911

PATIENT
  Age: 64 Year
  Sex: Female

DRUGS (1)
  1. NYSTATIN [Suspect]
     Active Substance: NYSTATIN
     Indication: Oral candidiasis
     Route: 048

REACTIONS (1)
  - Laryngeal oedema [Unknown]
